FAERS Safety Report 4349172-8 (Version None)
Quarter: 2004Q2

REPORT INFORMATION
  Report Type: 
  Country: None (occurrence: None)
  Receive Date: 20040427
  Receipt Date: 20030725
  Transmission Date: 20050107
  Serious: No
  Sender: FDA-Public Use
  Company Number: 000605

PATIENT
  Age: 61 Year
  Sex: Female

DRUGS (1)
  1. ZEVALIN [Suspect]
     Indication: NON-HODGKIN'S LYMPHOMA
     Dosage: RITUXAN DOSE, 1 INTRAVENOUS; IN-[111]ZEVALIN, INTRAVENOUS
     Route: 042
     Dates: start: 20030722, end: 20030722

REACTIONS (2)
  - THROAT TIGHTNESS [None]
  - URTICARIA [None]
